FAERS Safety Report 7948066-6 (Version None)
Quarter: 2011Q4

REPORT INFORMATION
  Report Type: 
  Country: None (occurrence: None)
  Receive Date: 20111130
  Receipt Date: 20111116
  Transmission Date: 20120403
  Serious: Yes (Hospitalization, Other)
  Sender: FDA-Public Use
  Company Number: IN-RANBAXY-2010US-31146

PATIENT

DRUGS (2)
  1. ZIDOVUDINE [Suspect]
     Dosage: 2 MG/KG, QID
     Route: 048
  2. ZIDOVUDINE [Suspect]
     Indication: ANTIRETROVIRAL THERAPY
     Dosage: 500 MG, UNK IN DIVIDED DOSES
     Route: 064

REACTIONS (23)
  - FOETAL EXPOSURE DURING PREGNANCY [None]
  - DEVELOPMENTAL DELAY [None]
  - NEONATAL ASPIRATION [None]
  - ATRIAL SEPTAL DEFECT [None]
  - HEPATOMEGALY [None]
  - BILIRUBIN CONJUGATED INCREASED [None]
  - ALANINE AMINOTRANSFERASE INCREASED [None]
  - BLOOD ALKALINE PHOSPHATASE INCREASED [None]
  - JAUNDICE [None]
  - DEHYDRATION [None]
  - GAMMA-GLUTAMYLTRANSFERASE INCREASED [None]
  - LACTIC ACIDOSIS [None]
  - DIARRHOEA [None]
  - DIARRHOEA NEONATAL [None]
  - BLOOD BILIRUBIN INCREASED [None]
  - VENTRICULAR SEPTAL DEFECT [None]
  - FAECES DISCOLOURED [None]
  - HEPATIC FUNCTION ABNORMAL [None]
  - MATERNAL DRUGS AFFECTING FOETUS [None]
  - CAESAREAN SECTION [None]
  - ASPARTATE AMINOTRANSFERASE INCREASED [None]
  - BLOOD ALBUMIN DECREASED [None]
  - LOW BIRTH WEIGHT BABY [None]
